FAERS Safety Report 6991921-4 (Version None)
Quarter: 2010Q3

REPORT INFORMATION
  Report Type: 
  Country: None (occurrence: None)
  Receive Date: 20100917
  Receipt Date: 20100902
  Transmission Date: 20110219
  Serious: Yes (Hospitalization)
  Sender: FDA-Public Use
  Company Number: PHHO2010GB13929

PATIENT
  Sex: Female

DRUGS (3)
  1. DICLOFENAC [Suspect]
     Dosage: UNK
  2. NO TREATMENT RECEIVED NOMED [Suspect]
     Dosage: NO TREATMENT
  3. CO-DYDRAMOL [Suspect]

REACTIONS (1)
  - PLEURAL EFFUSION [None]
